FAERS Safety Report 7055688-6 (Version None)
Quarter: 2010Q4

REPORT INFORMATION
  Report Type: 
  Country: None (occurrence: None)
  Receive Date: 20101021
  Receipt Date: 20101013
  Transmission Date: 20110411
  Serious: No
  Sender: FDA-Public Use
  Company Number: CA-JNJFOC-20101004562

PATIENT
  Sex: Female

DRUGS (1)
  1. SIMPONI [Suspect]
     Indication: RHEUMATOID ARTHRITIS
     Route: 058

REACTIONS (4)
  - ERYTHEMA [None]
  - IMMEDIATE POST-INJECTION REACTION [None]
  - PRURITUS [None]
  - SWELLING FACE [None]
